FAERS Safety Report 22119634 (Version 1)
Quarter: 2023Q1

REPORT INFORMATION
  Report Type: Spontaneous
  Country: US (occurrence: None)
  Receive Date: 20230321
  Receipt Date: 20230321
  Transmission Date: 20230418
  Serious: No
  Sender: FDA-Public Use
  Company Number: US-ROCHE-3040504

PATIENT
  Sex: Female
  Weight: 46.762 kg

DRUGS (6)
  1. ERIVEDGE [Suspect]
     Active Substance: VISMODEGIB
     Indication: Skin cancer
     Dosage: EVERY SATURDAY ;ONGOING: NO
     Route: 048
     Dates: start: 202110, end: 202201
  2. ERIVEDGE [Suspect]
     Active Substance: VISMODEGIB
     Dosage: EVERY SATURDAY ;ONGOING: YES
     Route: 048
     Dates: start: 202202
  3. ZINC [Suspect]
     Active Substance: ZINC
     Indication: Product used for unknown indication
     Route: 048
  4. VITAMIN D3 [Concomitant]
     Active Substance: CHOLECALCIFEROL
  5. AMLODIPINE [Concomitant]
     Active Substance: AMLODIPINE BESYLATE
     Route: 048
  6. CLARITIN-D 12 HOUR [Concomitant]
     Active Substance: LORATADINE\PSEUDOEPHEDRINE SULFATE
     Indication: Seasonal allergy
     Route: 048

REACTIONS (4)
  - Weight decreased [Not Recovered/Not Resolved]
  - Taste disorder [Not Recovered/Not Resolved]
  - Product label issue [Unknown]
  - Product barcode issue [Unknown]
